FAERS Safety Report 5931783-7 (Version None)
Quarter: 2008Q4

REPORT INFORMATION
  Report Type: 
  Country: None (occurrence: None)
  Receive Date: 20081009
  Receipt Date: 20080818
  Transmission Date: 20090506
  Serious: Yes (Other)
  Sender: FDA-Public Use
  Company Number: PHEH2008US07242

PATIENT
  Age: 59 Year
  Sex: Female

DRUGS (7)
  1. ZOMETA [Suspect]
     Indication: METASTASES TO BONE
     Dosage: 4 MG, MONTHLY, INTRAVENOUS
     Route: 042
     Dates: start: 20060830, end: 20080811
  2. ALOXI [Concomitant]
  3. DECADRON /CAN/ (DEXAMETHASONE) [Concomitant]
  4. VITAMIN B12 [Concomitant]
  5. TAXOTERE [Concomitant]
  6. FASLODEX [Concomitant]
  7. AVASTIN [Concomitant]

REACTIONS (1)
  - OSTEONECROSIS [None]
